FAERS Safety Report 9119008 (Version 2)
Quarter: 2013Q2

REPORT INFORMATION
  Report Type: Spontaneous
  Country: DE (occurrence: DE)
  Receive Date: 20130226
  Receipt Date: 20130527
  Transmission Date: 20140414
  Serious: Yes (Other)
  Sender: FDA-Public Use
  Company Number: PHHY2013DE017647

PATIENT
  Sex: Male

DRUGS (1)
  1. GLIVEC [Suspect]
     Indication: CHRONIC MYELOID LEUKAEMIA
     Dosage: UNK
     Dates: start: 2008, end: 201010

REACTIONS (4)
  - Hypertensive crisis [Unknown]
  - Skin disorder [Recovered/Resolved]
  - Gastrointestinal mucosal disorder [Recovered/Resolved]
  - Rheumatic disorder [Recovered/Resolved]
